FAERS Safety Report 9342718 (Version 1)
Quarter: 2013Q2

REPORT INFORMATION
  Report Type: Spontaneous
  Country: US (occurrence: US)
  Receive Date: 20130611
  Receipt Date: 20130611
  Transmission Date: 20140414
  Serious: Yes (Other)
  Sender: FDA-Public Use
  Company Number: US-BAYER-2013-069508

PATIENT
  Age: 43 Year
  Sex: Female

DRUGS (18)
  1. YASMIN [Suspect]
  2. ZOFRAN [Concomitant]
     Dosage: 4 MG, UNK
  3. DEMEROL [Concomitant]
     Indication: HEADACHE
     Dosage: 75 MG, UNK
  4. LORTAB [Concomitant]
     Indication: HEADACHE
     Dosage: 5 MG, UNK
  5. PHENERGAN [Concomitant]
     Indication: NAUSEA
     Dosage: 25 MG, UNK
  6. TOPROL XL [Concomitant]
     Indication: HYPERTENSION
     Dosage: 50 MG, ONCE
  7. DARVOCET-N [Concomitant]
     Indication: PAIN
     Dosage: 100 UNK,
  8. FENTANYL [Concomitant]
     Dosage: 100 UNK, UNK
  9. VERSED [Concomitant]
     Dosage: 2 MG, UNK
  10. MAGNESIUM SULFATE [Concomitant]
  11. PROPOFOL [Concomitant]
     Dosage: 200 UNK, UNK
  12. MORPHINE [Concomitant]
     Dosage: 5 MG, UNK
     Route: 042
  13. MS-CONTIN [Concomitant]
     Dosage: 30 MG, UNK
  14. APRESOLINE [Concomitant]
     Dosage: 10 MG, UNK
     Route: 042
  15. MYLICON [Concomitant]
  16. TYLENOL [PARACETAMOL] [Concomitant]
     Dosage: 650 MG, UNK
  17. MIDAZOLAM [Concomitant]
  18. CEFAZOLIN [Concomitant]

REACTIONS (2)
  - Deep vein thrombosis [None]
  - Thrombophlebitis superficial [None]
